FAERS Safety Report 15630398 (Version 3)
Quarter: 2018Q4

REPORT INFORMATION
  Report Type: Report from Study
  Country: JP (occurrence: JP)
  Receive Date: 20181118
  Receipt Date: 20181227
  Transmission Date: 20190205
  Serious: Yes (Life-Threatening, Hospitalization)
  Sender: FDA-Public Use
  Company Number: JP-ROCHE-2216346

PATIENT
  Age: 85 Year
  Sex: Male
  Weight: 55 kg

DRUGS (2)
  1. ATEZOLIZUMAB. [Suspect]
     Active Substance: ATEZOLIZUMAB
     Indication: NON-SMALL CELL LUNG CANCER
     Route: 041
     Dates: start: 20180828, end: 20180828
  2. ATEZOLIZUMAB. [Suspect]
     Active Substance: ATEZOLIZUMAB
     Indication: LUNG ADENOCARCINOMA

REACTIONS (2)
  - Small intestinal haemorrhage [Recovered/Resolved]
  - Small intestine ulcer [Recovered/Resolved]

NARRATIVE: CASE EVENT DATE: 20180914
